FAERS Safety Report 13825983 (Version 2)
Quarter: 2018Q3

REPORT INFORMATION
  Report Type: Spontaneous
  Country: US (occurrence: US)
  Receive Date: 20170802
  Receipt Date: 20180921
  Transmission Date: 20181010
  Serious: No
  Sender: FDA-Public Use
  Company Number: US-IGSA-GTI005117

PATIENT
  Age: 37 Year
  Sex: Female
  Weight: 84 kg

DRUGS (20)
  1. ACETAMINOPHEN. [Concomitant]
     Active Substance: ACETAMINOPHEN
     Indication: PREMEDICATION
     Dosage: 1000 MG, UNK
     Route: 042
     Dates: start: 20170203
  2. OMEPRAZOLE. [Concomitant]
     Active Substance: OMEPRAZOLE
     Dosage: 40 MG, BID
  3. NORCO [Concomitant]
     Active Substance: ACETAMINOPHEN\HYDROCODONE BITARTRATE
     Dosage: UNK UNK, Q.6H.
     Route: 048
  4. GAMUNEX?C [Suspect]
     Active Substance: HUMAN IMMUNOGLOBULIN G
     Dosage: 40 G, Q.M.T.
     Route: 042
     Dates: start: 20160913
  5. HYDROCORTISONE. [Concomitant]
     Active Substance: HYDROCORTISONE
     Indication: PREMEDICATION
     Dosage: 100 MG, UNK
     Dates: start: 20170203
  6. LAMOTRIGINE. [Concomitant]
     Active Substance: LAMOTRIGINE
     Dosage: 150 MG, BID
  7. METHOTREXATE. [Concomitant]
     Active Substance: METHOTREXATE
     Dosage: 17.5 MG, Q.WK.
  8. PREDNISONE. [Concomitant]
     Active Substance: PREDNISONE
     Dosage: 10 MG, PRN
     Route: 048
  9. LYRICA [Concomitant]
     Active Substance: PREGABALIN
     Dosage: 200 MG, TID
  10. ADDERALL [Concomitant]
     Active Substance: AMPHETAMINE ASPARTATE\AMPHETAMINE SULFATE\DEXTROAMPHETAMINE SACCHARATE\DEXTROAMPHETAMINE SULFATE
     Dosage: 30 MG, QD
  11. FOLIC ACID. [Concomitant]
     Active Substance: FOLIC ACID
     Dosage: 5 MG, QD
  12. NORMAL SALINE [Concomitant]
     Active Substance: SODIUM CHLORIDE
     Indication: PREMEDICATION
     Dosage: 500 ML, UNK
     Dates: start: 20170203
  13. CYTOMEL [Concomitant]
     Active Substance: LIOTHYRONINE SODIUM
     Dosage: 5 ?G, QD
  14. PROZAC [Concomitant]
     Active Substance: FLUOXETINE HYDROCHLORIDE
     Dosage: 20 MG, QD
  15. DIPHENHYDRAMINE. [Concomitant]
     Active Substance: DIPHENHYDRAMINE
     Indication: PREMEDICATION
     Dosage: 25 MG, UNK
     Route: 042
     Dates: start: 20170203
  16. PLAQUENIL                          /00072602/ [Concomitant]
     Active Substance: HYDROXYCHLOROQUINE DIPHOSPHATE
     Dosage: 400 MG, BID
     Route: 048
  17. GAMUNEX?C [Suspect]
     Active Substance: HUMAN IMMUNOGLOBULIN G
     Indication: SYSTEMIC LUPUS ERYTHEMATOSUS
     Dosage: 25 G, Q.M.T.
     Route: 042
     Dates: start: 20170203, end: 20170203
  18. LEVOTHYROXINE. [Concomitant]
     Active Substance: LEVOTHYROXINE
     Dosage: 200 ?G, QD
  19. DIAZEPAM. [Concomitant]
     Active Substance: DIAZEPAM
     Dosage: 10 MG, BID
  20. KETOROLAC [Concomitant]
     Active Substance: KETOROLAC\KETOROLAC TROMETHAMINE
     Indication: PREMEDICATION
     Dosage: 15 MG, UNK
     Dates: start: 20170203

REACTIONS (1)
  - Headache [Recovering/Resolving]

NARRATIVE: CASE EVENT DATE: 20170203
